FAERS Safety Report 18924829 (Version 2)
Quarter: 2021Q2

REPORT INFORMATION
  Report Type: Report from Study
  Country: US (occurrence: US)
  Receive Date: 20210223
  Receipt Date: 20210412
  Transmission Date: 20210717
  Serious: No
  Sender: FDA-Public Use
  Company Number: NVSC2021US034084

PATIENT

DRUGS (1)
  1. COSENTYX [Suspect]
     Active Substance: SECUKINUMAB
     Indication: PSORIATIC ARTHROPATHY
     Dosage: 300 MG, QMO (EVERY 28 DAYS)
     Route: 058

REACTIONS (4)
  - Tendon rupture [Unknown]
  - Psoriasis [Recovering/Resolving]
  - Osteoarthritis [Unknown]
  - Immune system disorder [Unknown]
